FAERS Safety Report 10411639 (Version 1)
Quarter: 2014Q3

REPORT INFORMATION
  Report Type: Spontaneous
  Country: FR (occurrence: FR)
  Receive Date: 20140827
  Receipt Date: 20140827
  Transmission Date: 20150326
  Serious: Yes (Other)
  Sender: FDA-Public Use
  Company Number: FR-ABBVIE-14K-056-1274220-00

PATIENT
  Age: 43 Year
  Sex: Female

DRUGS (2)
  1. HUMIRA [Suspect]
     Active Substance: ADALIMUMAB
     Indication: CROHN^S DISEASE
     Dates: start: 1991, end: 20131031
  2. HUMIRA [Suspect]
     Active Substance: ADALIMUMAB
     Dates: start: 201312

REACTIONS (4)
  - Frequent bowel movements [Unknown]
  - Deafness unilateral [Unknown]
  - Intertrigo [Unknown]
  - Ear infection [Unknown]

NARRATIVE: CASE EVENT DATE: 2013
